FAERS Safety Report 8335424-3 (Version None)
Quarter: 2012Q2

REPORT INFORMATION
  Report Type: 
  Country: None (occurrence: None)
  Receive Date: 20120503
  Receipt Date: 20120502
  Transmission Date: 20120825
  Serious: Yes (Other)
  Sender: FDA-Public Use
  Company Number: CH-ROCHE-1061048

PATIENT
  Sex: Female
  Weight: 67 kg

DRUGS (2)
  1. RIBOMUSTIN [Concomitant]
     Indication: WALDENSTROM'S MACROGLOBULINAEMIA
     Route: 042
     Dates: start: 20111018
  2. MABTHERA [Suspect]
     Indication: WALDENSTROM'S MACROGLOBULINAEMIA
     Route: 042
     Dates: start: 20111018

REACTIONS (3)
  - HALLUCINATION, AUDITORY [None]
  - COGNITIVE DISORDER [None]
  - TINNITUS [None]
